FAERS Safety Report 16693268 (Version 1)
Quarter: 2019Q3

REPORT INFORMATION
  Report Type: Spontaneous
  Country: US (occurrence: US)
  Receive Date: 20190812
  Receipt Date: 20190812
  Transmission Date: 20191004
  Serious: Yes (Other)
  Sender: FDA-Public Use
  Company Number: US-PFIZER INC-2019292831

PATIENT
  Age: 76 Year
  Sex: Female

DRUGS (1)
  1. TIKOSYN [Suspect]
     Active Substance: DOFETILIDE
     Indication: ATRIAL FIBRILLATION
     Dosage: 250 MG, 2X/DAY
     Route: 048
     Dates: start: 20190610, end: 20190702

REACTIONS (6)
  - Cardiac flutter [Unknown]
  - Drug ineffective [Unknown]
  - International normalised ratio decreased [Unknown]
  - Arrhythmia [Unknown]
  - Heart rate increased [Unknown]
  - Tachycardia [Unknown]

NARRATIVE: CASE EVENT DATE: 20190617
